FAERS Safety Report 23128787 (Version 1)
Quarter: 2023Q4

REPORT INFORMATION
  Report Type: Spontaneous
  Country: US (occurrence: None)
  Receive Date: 20231027
  Receipt Date: 20231027
  Transmission Date: 20240110
  Serious: Yes (Other)
  Sender: FDA-Public Use
  Company Number: None

PATIENT
  Age: 59 Year
  Sex: Female

DRUGS (1)
  1. VUMERITY [Suspect]
     Active Substance: DIROXIMEL FUMARATE
     Dosage: FREQUENCY : TWICE A DAY;?
     Dates: start: 20220628

REACTIONS (4)
  - Product dispensing error [None]
  - Product prescribing error [None]
  - Therapy interrupted [None]
  - Breast cancer [None]

NARRATIVE: CASE EVENT DATE: 20230707
